FAERS Safety Report 19456244 (Version 1)
Quarter: 2021Q2

REPORT INFORMATION
  Report Type: Spontaneous
  Country: US (occurrence: US)
  Receive Date: 20210624
  Receipt Date: 20210624
  Transmission Date: 20210717
  Serious: Yes (Hospitalization)
  Sender: FDA-Public Use
  Company Number: None

PATIENT
  Age: 57 Year
  Sex: Female

DRUGS (12)
  1. LISINOPRIL. [Concomitant]
     Active Substance: LISINOPRIL
  2. METFORMIN [Concomitant]
     Active Substance: METFORMIN HYDROCHLORIDE
  3. OXYCODONE [Concomitant]
     Active Substance: OXYCODONE
  4. ZOLPIDEM [Concomitant]
     Active Substance: ZOLPIDEM TARTRATE
  5. AMLODIPINE [Concomitant]
     Active Substance: AMLODIPINE BESYLATE
  6. NORCO [Concomitant]
     Active Substance: ACETAMINOPHEN\HYDROCODONE BITARTRATE
  7. SYNTHROID [Concomitant]
     Active Substance: LEVOTHYROXINE SODIUM
  8. XELJANZ [Suspect]
     Active Substance: TOFACITINIB CITRATE
     Indication: OSTEOPOROSIS
     Dates: start: 20180814
  9. NABUMETONE. [Concomitant]
     Active Substance: NABUMETONE
  10. ATORVASTATIN [Concomitant]
     Active Substance: ATORVASTATIN
  11. VICTOZA [Concomitant]
     Active Substance: LIRAGLUTIDE
  12. MOMETASONE [Concomitant]
     Active Substance: MOMETASONE

REACTIONS (2)
  - Therapy interrupted [None]
  - Surgery [None]

NARRATIVE: CASE EVENT DATE: 20210623
